FAERS Safety Report 9203079 (Version 1)
Quarter: 2013Q1

REPORT INFORMATION
  Report Type: Spontaneous
  Country: US (occurrence: None)
  Receive Date: 20120709
  Receipt Date: 20120709
  Transmission Date: 20140127
  Serious: Yes (Other)
  Sender: FDA-Public Use
  Company Number: PHHY2010US65182

PATIENT
  Age: 60 Year
  Sex: Female

DRUGS (1)
  1. GLEEVEC (IMATINIB) UNKNOWN [Suspect]
     Indication: CHRONIC MYELOID LEUKAEMIA
     Route: 048
     Dates: start: 20100903

REACTIONS (6)
  - Chronic myeloid leukaemia [None]
  - Sluggishness [None]
  - Fatigue [None]
  - Gastroenteritis viral [None]
  - Skin discolouration [None]
  - Neoplasm malignant [None]
